FAERS Safety Report 7408250-7 (Version None)
Quarter: 2011Q2

REPORT INFORMATION
  Report Type: 
  Country: None (occurrence: None)
  Receive Date: 20110412
  Receipt Date: 20110217
  Transmission Date: 20111010
  Serious: No
  Sender: FDA-Public Use
  Company Number: A0914182A

PATIENT
  Age: 86 Year
  Sex: Male

DRUGS (4)
  1. CARVEDILOL [Concomitant]
  2. EYE DROPS [Concomitant]
     Route: 047
  3. SIMVASTATIN [Concomitant]
  4. JALYN [Suspect]
     Indication: PROSTATIC DISORDER
     Dosage: 1CAP PER DAY
     Route: 048
     Dates: start: 20110121, end: 20110216

REACTIONS (5)
  - EYELID FUNCTION DISORDER [None]
  - ERYTHEMA OF EYELID [None]
  - EYE SWELLING [None]
  - EYELID OEDEMA [None]
  - OCULAR HYPERAEMIA [None]
